FAERS Safety Report 4578947-5 (Version None)
Quarter: 2005Q1

REPORT INFORMATION
  Report Type: 
  Country: None (occurrence: None)
  Receive Date: 20050211
  Receipt Date: 20011024
  Transmission Date: 20050727
  Serious: Yes (Hospitalization, Disabling)
  Sender: FDA-Public Use
  Company Number: US-MERCK-01104471

PATIENT
  Age: 66 Year
  Sex: Male
  Weight: 81 kg

DRUGS (3)
  1. VIOXX [Suspect]
     Indication: OSTEOARTHRITIS
     Route: 048
     Dates: start: 20001001, end: 20010501
  2. ASPIRIN [Concomitant]
     Route: 065
     Dates: start: 20010417
  3. RESTORIL [Concomitant]
     Indication: SLEEP DISORDER THERAPY
     Route: 065
     Dates: start: 20010101

REACTIONS (40)
  - ANXIETY [None]
  - ARTHRALGIA [None]
  - ASTHENIA [None]
  - BENIGN PROSTATIC HYPERPLASIA [None]
  - CHOKING [None]
  - COGNITIVE DISORDER [None]
  - COUGH [None]
  - DEPRESSION [None]
  - DIVERTICULUM [None]
  - DYSPNOEA [None]
  - DYSURIA [None]
  - EROSIVE DUODENITIS [None]
  - EROSIVE OESOPHAGITIS [None]
  - FATIGUE [None]
  - GASTRIC DISORDER [None]
  - GASTRITIS EROSIVE [None]
  - GASTROOESOPHAGEAL REFLUX DISEASE [None]
  - HEAT STROKE [None]
  - HIATUS HERNIA [None]
  - HYPERTENSION [None]
  - HYPOACUSIS [None]
  - INTESTINAL FUNCTIONAL DISORDER [None]
  - LUNG DISORDER [None]
  - MALAISE [None]
  - MUSCLE ATROPHY [None]
  - NASOPHARYNGITIS [None]
  - OESOPHAGEAL RUPTURE [None]
  - PANCREATITIS [None]
  - RENAL CYST [None]
  - RHINORRHOEA [None]
  - STOMACH DISCOMFORT [None]
  - STRESS [None]
  - SUPRAVENTRICULAR EXTRASYSTOLES [None]
  - THROMBOEMBOLIC STROKE [None]
  - TRANSIENT ISCHAEMIC ATTACK [None]
  - UPPER RESPIRATORY TRACT INFECTION [None]
  - URINARY RETENTION [None]
  - URINARY TRACT DISORDER [None]
  - URINARY TRACT INFECTION [None]
  - WEIGHT DECREASED [None]
